FAERS Safety Report 13670956 (Version 1)
Quarter: 2017Q2

REPORT INFORMATION
  Report Type: Spontaneous
  Country: US (occurrence: US)
  Receive Date: 20170620
  Receipt Date: 20170620
  Transmission Date: 20170830
  Serious: Yes (Hospitalization, Other)
  Sender: FDA-Public Use
  Company Number: US-PFIZER INC-2017261181

PATIENT
  Age: 80 Year
  Sex: Female

DRUGS (2)
  1. AMINOPHYLLINE. [Suspect]
     Active Substance: AMINOPHYLLINE
     Dosage: UNK
     Dates: start: 201701, end: 201701
  2. LEXISCAN [Suspect]
     Active Substance: REGADENOSON
     Dosage: UNK
     Dates: start: 201701, end: 201701

REACTIONS (1)
  - Seizure [Unknown]

NARRATIVE: CASE EVENT DATE: 201701
